FAERS Safety Report 19167938 (Version 1)
Quarter: 2021Q2

REPORT INFORMATION
  Report Type: Spontaneous
  Country: CA (occurrence: CA)
  Receive Date: 20210422
  Receipt Date: 20210422
  Transmission Date: 20210717
  Serious: Yes (Other)
  Sender: FDA-Public Use
  Company Number: CA-EMCURE PHARMACEUTICALS LTD-2021-EPL-001300

PATIENT
  Age: 76 Year
  Sex: Female
  Weight: 67.12 kg

DRUGS (8)
  1. APO?NAPROXEN [Concomitant]
     Active Substance: NAPROXEN
  2. FORXIGA [Concomitant]
     Active Substance: DAPAGLIFLOZIN
  3. JANUVIA [Concomitant]
     Active Substance: SITAGLIPTIN PHOSPHATE
  4. JAMP?OMEPRAZOLE DR [Concomitant]
  5. APO?AMLODIPINE [Concomitant]
     Active Substance: AMLODIPINE BESYLATE
  6. CRESTOR [Concomitant]
     Active Substance: ROSUVASTATIN CALCIUM
  7. MICARDIS [Suspect]
     Active Substance: TELMISARTAN
  8. ACARBOSE. [Suspect]
     Active Substance: ACARBOSE
     Indication: TYPE 2 DIABETES MELLITUS
     Dosage: 100 MILLIGRAM, TID (3 EVERY 1 DAYS)
     Route: 048

REACTIONS (3)
  - Pain [Unknown]
  - Product substitution issue [Unknown]
  - Oedema peripheral [Unknown]
